FAERS Safety Report 6397781-7 (Version None)
Quarter: 2009Q4

REPORT INFORMATION
  Report Type: 
  Country: None (occurrence: None)
  Receive Date: 20091007
  Receipt Date: 20090924
  Transmission Date: 20100525
  Serious: Yes (Hospitalization)
  Sender: FDA-Public Use
  Company Number: 001801

PATIENT

DRUGS (1)
  1. ISOSORBIDE MONONITRATE [Suspect]
     Dosage: (45 MG, USED A 30 MG TABLETS AND SPLIT ANOTHER 30 MG TABLET ORAL)
     Route: 048

REACTIONS (1)
  - KNEE ARTHROPLASTY [None]
